FAERS Safety Report 13459288 (Version 1)
Quarter: 2017Q2

REPORT INFORMATION
  Report Type: Spontaneous
  Country: US (occurrence: US)
  Receive Date: 20170419
  Receipt Date: 20170419
  Transmission Date: 20170830
  Serious: No
  Sender: FDA-Public Use
  Company Number: US-CIPLA LTD.-2016US22758

PATIENT

DRUGS (1)
  1. HYDROXYZINE [Suspect]
     Active Substance: HYDROXYZINE HYDROCHLORIDE
     Dosage: 25 MG, UNK
     Route: 048
     Dates: start: 20161020

REACTIONS (2)
  - Hypoaesthesia oral [Recovered/Resolved]
  - Hypoaesthesia [Recovered/Resolved]
